FAERS Safety Report 15076896 (Version 2)
Quarter: 2018Q3

REPORT INFORMATION
  Report Type: Spontaneous
  Country: JP (occurrence: JP)
  Receive Date: 20180627
  Receipt Date: 20180806
  Transmission Date: 20181010
  Serious: Yes (Other)
  Sender: FDA-Public Use
  Company Number: PHJP2018JP013056

PATIENT
  Age: 73 Year
  Sex: Female

DRUGS (1)
  1. CARBAMAZEPINE. [Suspect]
     Active Substance: CARBAMAZEPINE
     Indication: PRODUCT USED FOR UNKNOWN INDICATION
     Dosage: UNK
     Route: 065

REACTIONS (5)
  - Altered state of consciousness [Recovering/Resolving]
  - Overdose [Unknown]
  - Intentional self-injury [Unknown]
  - Toxicity to various agents [Unknown]
  - Blood pressure decreased [Unknown]
